FAERS Safety Report 6997177-0 (Version None)
Quarter: 2010Q3

REPORT INFORMATION
  Report Type: 
  Country: None (occurrence: None)
  Receive Date: 20100918
  Receipt Date: 20091027
  Transmission Date: 20110219
  Serious: No
  Sender: FDA-Public Use
  Company Number: US-WYE-H11042209

PATIENT
  Sex: Female
  Weight: 108.96 kg

DRUGS (9)
  1. PRISTIQ [Suspect]
     Indication: DEPRESSION
     Route: 048
     Dates: start: 20090805, end: 20090801
  2. PRISTIQ [Suspect]
     Route: 048
     Dates: start: 20090811, end: 20090904
  3. PRISTIQ [Suspect]
     Route: 048
     Dates: start: 20090907, end: 20090908
  4. PRISTIQ [Suspect]
     Route: 048
     Dates: start: 20090909, end: 20090913
  5. PRISTIQ [Suspect]
     Dosage: UNKNOWN
     Route: 048
     Dates: start: 20090101
  6. ACTONEL [Concomitant]
  7. LEVAQUIN [Concomitant]
  8. LISINOPRIL [Concomitant]
  9. DIOVAN [Concomitant]

REACTIONS (10)
  - AGITATION [None]
  - BALANCE DISORDER [None]
  - COUGH [None]
  - DECREASED APPETITE [None]
  - DRUG WITHDRAWAL SYNDROME [None]
  - ERYTHEMA [None]
  - INSOMNIA [None]
  - IRRITABILITY [None]
  - SENSATION OF HEAVINESS [None]
  - WEIGHT DECREASED [None]
